FAERS Safety Report 4458209-7 (Version None)
Quarter: 2004Q3

REPORT INFORMATION
  Report Type: 
  Country: None (occurrence: None)
  Receive Date: 20040924
  Receipt Date: 20040912
  Transmission Date: 20050211
  Serious: Yes (Disabling)
  Sender: FDA-Public Use
  Company Number: 380330

PATIENT
  Age: 49 Year
  Sex: Female
  Weight: 80 kg

DRUGS (8)
  1. PEG-INTERFERON ALFA 2A (RO 25-8310) [Suspect]
     Dosage: FORM: SYRINGE
     Route: 058
     Dates: start: 20030927
  2. PEG-INTERFERON ALFA 2A (RO 25-8310) [Suspect]
     Dosage: LOWERED
     Route: 058
     Dates: end: 20040825
  3. RIBAVIRIN [Suspect]
     Route: 048
     Dates: start: 20030927, end: 20040808
  4. RIBAVIRIN [Suspect]
     Dosage: LOWERED DUE TO SAE
     Route: 048
     Dates: start: 20040808, end: 20040825
  5. AMANTADINE HCL [Suspect]
     Route: 048
     Dates: start: 20030927, end: 20040825
  6. AVELOX [Concomitant]
  7. LOCOID CREAM [Concomitant]
  8. SELENIUM TRACE METAL ADDITIVE [Concomitant]

REACTIONS (2)
  - ASTHMA [None]
  - EMPHYSEMA [None]
